FAERS Safety Report 8534297-3 (Version None)
Quarter: 2012Q3

REPORT INFORMATION
  Report Type: 
  Country: None (occurrence: None)
  Receive Date: 20120724
  Receipt Date: 20120718
  Transmission Date: 20120928
  Serious: Yes (Other)
  Sender: FDA-Public Use
  Company Number: US-BAYER-2012-061505

PATIENT
  Age: 42 Year
  Sex: Female
  Weight: 81.633 kg

DRUGS (1)
  1. MIRENA [Suspect]
     Indication: CONTRACEPTION
     Dosage: 20 MCG/24HR, CONT
     Dates: start: 20120611, end: 20120611

REACTIONS (4)
  - UTERINE PERFORATION [None]
  - ABDOMINAL PAIN [None]
  - PROCEDURAL HAEMORRHAGE [None]
  - PROCEDURAL PAIN [None]
